FAERS Safety Report 15308269 (Version 3)
Quarter: 2021Q2

REPORT INFORMATION
  Report Type: Report from Study
  Country: US (occurrence: US)
  Receive Date: 20180822
  Receipt Date: 20210513
  Transmission Date: 20210716
  Serious: Yes (Other)
  Sender: FDA-Public Use
  Company Number: US-BRISTOL-MYERS SQUIBB COMPANY-BMS-2018-074257

PATIENT
  Age: 79 Year
  Sex: Female

DRUGS (3)
  1. ACTEMRA [Concomitant]
     Active Substance: TOCILIZUMAB
     Indication: PRODUCT USED FOR UNKNOWN INDICATION
     Dosage: UNK
     Route: 065
  2. FOLIC ACID. [Concomitant]
     Active Substance: FOLIC ACID
     Indication: PRODUCT USED FOR UNKNOWN INDICATION
     Dosage: UNK
     Route: 065
  3. ABATACEPT [Suspect]
     Active Substance: ABATACEPT
     Indication: RHEUMATOID ARTHRITIS
     Dosage: 500 MG, Q4WK
     Route: 042

REACTIONS (8)
  - Upper respiratory tract infection [Unknown]
  - Urinary tract infection [Unknown]
  - Fracture [Unknown]
  - Sepsis [Recovered/Resolved]
  - Bacteraemia [Recovered/Resolved]
  - Escherichia urinary tract infection [Recovered/Resolved]
  - Pyelonephritis [Recovered/Resolved]
  - Enteritis [Unknown]

NARRATIVE: CASE EVENT DATE: 20150623
